FAERS Safety Report 10735992 (Version 1)
Quarter: 2015Q1

REPORT INFORMATION
  Report Type: Spontaneous
  Country: US (occurrence: US)
  Receive Date: 20150126
  Receipt Date: 20150126
  Transmission Date: 20150721
  Serious: Yes (Hospitalization, Other)
  Sender: FDA-Public Use
  Company Number: US-BAYER-2015-008578

PATIENT
  Age: 49 Year
  Sex: Female
  Weight: 69.39 kg

DRUGS (6)
  1. YAZ [Suspect]
     Active Substance: DROSPIRENONE\ETHINYL ESTRADIOL
  2. METOPROLOL [Concomitant]
     Active Substance: METOPROLOL
     Dosage: 50 MG, UNK
  3. CLONAZEPAM. [Concomitant]
     Active Substance: CLONAZEPAM
     Dosage: 1 MG, UNK
  4. LIPITOR [Concomitant]
     Active Substance: ATORVASTATIN CALCIUM
     Dosage: 20 MG, UNK
  5. LEVOTHYROXINE [Concomitant]
     Active Substance: LEVOTHYROXINE
     Dosage: 0.75 MG, UNK
  6. VENLAFAXINE [Concomitant]
     Active Substance: VENLAFAXINE HYDROCHLORIDE
     Dosage: 75 MG, UNK

REACTIONS (18)
  - Arthralgia [None]
  - Urinary tract infection [None]
  - Head injury [None]
  - Contusion [None]
  - Mitral valve incompetence [None]
  - Infection [None]
  - Tricuspid valve incompetence [None]
  - Abdominal pain [None]
  - Fall [None]
  - Oedema [None]
  - Limb injury [None]
  - Cerebrovascular accident [Recovering/Resolving]
  - Cholecystectomy [None]
  - Transient ischaemic attack [None]
  - Aortic valve incompetence [None]
  - Constipation [None]
  - Pain in extremity [None]
  - Musculoskeletal stiffness [None]

NARRATIVE: CASE EVENT DATE: 20110505
